FAERS Safety Report 9272868 (Version 3)
Quarter: 2013Q2

REPORT INFORMATION
  Report Type: Spontaneous
  Country: US (occurrence: US)
  Receive Date: 20130506
  Receipt Date: 20130619
  Transmission Date: 20140414
  Serious: No
  Sender: FDA-Public Use
  Company Number: US-JNJFOC-20130414247

PATIENT
  Age: 56 Year
  Sex: Female
  Weight: 94.35 kg

DRUGS (18)
  1. DURAGESIC [Suspect]
     Indication: PAIN
     Dosage: ATLEAST 7 YEARS AGO
     Route: 062
  2. DURAGESIC [Suspect]
     Indication: BACK PAIN
     Route: 062
     Dates: start: 20130425
  3. DURAGESIC [Suspect]
     Indication: BACK PAIN
     Dosage: ATLEAST 7 YEARS AGO
     Route: 062
  4. DURAGESIC [Suspect]
     Indication: BACK PAIN
     Dosage: ATLEAST 7 YEARS AGO
     Route: 062
     Dates: start: 20130401, end: 20130425
  5. DURAGESIC [Suspect]
     Indication: PAIN IN EXTREMITY
     Dosage: ATLEAST 7 YEARS AGO
     Route: 062
  6. DURAGESIC [Suspect]
     Indication: PAIN IN EXTREMITY
     Route: 062
     Dates: start: 20130425
  7. DURAGESIC [Suspect]
     Indication: PAIN IN EXTREMITY
     Dosage: ATLEAST 7 YEARS AGO
     Route: 062
     Dates: start: 20130401, end: 20130425
  8. DURAGESIC [Suspect]
     Indication: PAIN IN EXTREMITY
     Dosage: ATLEAST 7 YEARS AGO
     Route: 062
  9. DURAGESIC [Suspect]
     Indication: PAIN IN EXTREMITY
     Dosage: ATLEAST 7 YEARS AGO
     Route: 062
     Dates: start: 20130401, end: 20130425
  10. DURAGESIC [Suspect]
     Indication: PAIN IN EXTREMITY
     Route: 062
     Dates: start: 20130425
  11. DURAGESIC [Suspect]
     Indication: SPINAL PAIN
     Route: 062
     Dates: start: 20130425
  12. DURAGESIC [Suspect]
     Indication: SPINAL PAIN
     Dosage: ATLEAST 7 YEARS AGO
     Route: 062
     Dates: start: 20130401, end: 20130425
  13. DURAGESIC [Suspect]
     Indication: SPINAL PAIN
     Dosage: ATLEAST 7 YEARS AGO
     Route: 062
  14. DURAGESIC [Suspect]
     Indication: PAIN
     Route: 062
     Dates: start: 20130425
  15. DURAGESIC [Suspect]
     Indication: PAIN
     Dosage: ATLEAST 7 YEARS AGO
     Route: 062
  16. DURAGESIC [Suspect]
     Indication: PAIN
     Dosage: ATLEAST 7 YEARS AGO
     Route: 062
     Dates: start: 20130401, end: 20130425
  17. OXYMORPHONE [Concomitant]
     Indication: PAIN
     Route: 065
  18. TIZANIDINE [Concomitant]
     Indication: MUSCLE RELAXANT THERAPY
     Route: 065

REACTIONS (7)
  - Pain [Recovered/Resolved with Sequelae]
  - Product quality issue [Unknown]
  - Blister [Not Recovered/Not Resolved]
  - Product quality issue [Recovered/Resolved]
  - Pain [Recovered/Resolved with Sequelae]
  - Drug dose omission [Not Recovered/Not Resolved]
  - Wrong technique in drug usage process [Unknown]
